FAERS Safety Report 9652065 (Version 1)
Quarter: 2013Q4

REPORT INFORMATION
  Report Type: Spontaneous
  Country: JP (occurrence: JP)
  Receive Date: 20131029
  Receipt Date: 20131029
  Transmission Date: 20140711
  Serious: Yes (Hospitalization)
  Sender: FDA-Public Use
  Company Number: JP-MERCK-1310JPN012218

PATIENT
  Age: 60 Year
  Sex: Male

DRUGS (2)
  1. GLACTIV [Suspect]
     Indication: TYPE 2 DIABETES MELLITUS
     Dosage: UNK
     Route: 048
  2. GLACTIV [Suspect]
     Indication: TYPE 2 DIABETES MELLITUS
     Dosage: 700 MG (12.5 MG, 25 MG, 50 MG, 100 MG)
     Route: 048

REACTIONS (4)
  - Malaise [Unknown]
  - Overdose [Unknown]
  - Drug abuse [Unknown]
  - Drug administration error [Unknown]
